FAERS Safety Report 12191952 (Version 1)
Quarter: 2016Q1

REPORT INFORMATION
  Report Type: Spontaneous
  Country: FR (occurrence: FR)
  Receive Date: 20160318
  Receipt Date: 20160318
  Transmission Date: 20160526
  Serious: Yes (Death, Other)
  Sender: FDA-Public Use
  Company Number: FR-PFIZER INC-2016149727

PATIENT
  Age: 68 Year
  Sex: Male

DRUGS (8)
  1. ZELITREX [Concomitant]
     Active Substance: VALACYCLOVIR HYDROCHLORIDE
     Dosage: UNK
     Dates: end: 20160223
  2. LEXOMIL [Concomitant]
     Active Substance: BROMAZEPAM
     Dosage: UNK
     Dates: end: 20160223
  3. VINCRISTINE TEVA [Suspect]
     Active Substance: VINCRISTINE
     Dosage: UNK, ON DAY1 AND DAY8
     Route: 041
     Dates: start: 20160215
  4. KIDROLASE [Suspect]
     Active Substance: ASPARAGINASE
     Dosage: UNK, ON DAY1
     Route: 041
     Dates: start: 20160215, end: 20160215
  5. ZAVEDOS [Suspect]
     Active Substance: IDARUBICIN
     Dosage: UNK, ON DAY1, DAY2, DAY8, DAY9
     Route: 041
     Dates: start: 20160215
  6. DEXAMETHASONE MYLAN [Suspect]
     Active Substance: DEXAMETHASONE
     Dosage: UNK, ON DAY1, DAY2, DAY8, DAY9, DAY10
     Route: 041
     Dates: start: 20160215
  7. BACTRIM [Concomitant]
     Active Substance: SULFAMETHOXAZOLE\TRIMETHOPRIM
     Dosage: UNK
     Dates: end: 20160223
  8. ALLOPURINOL. [Concomitant]
     Active Substance: ALLOPURINOL
     Dosage: UNK
     Dates: end: 20160223

REACTIONS (2)
  - Hepatic failure [Fatal]
  - Device related infection [Unknown]

NARRATIVE: CASE EVENT DATE: 201602
